FAERS Safety Report 7649216-1 (Version None)
Quarter: 2011Q3

REPORT INFORMATION
  Report Type: 
  Country: None (occurrence: None)
  Receive Date: 20110726
  Receipt Date: 20110712
  Transmission Date: 20111222
  Serious: Yes (Other)
  Sender: FDA-Public Use
  Company Number: FK201101380

PATIENT
  Age: 73 Year
  Sex: Male

DRUGS (5)
  1. SUXAMETHONIUM CHLORIDE (SUXAMETHONIUM CHLORIDE) (SUXAMETHONIUM CHLORID [Suspect]
     Indication: CHRONIC LYMPHOCYTIC LEUKAEMIA
     Dosage: 90 MG
  2. VINCRISTINE [Suspect]
     Indication: CHRONIC LYMPHOCYTIC LEUKAEMIA
  3. CYTARABINE [Suspect]
     Indication: CHRONIC LYMPHOCYTIC LEUKAEMIA
     Dosage: INTRAVENOUS (NOT OTHERWISE SPECIFIED)
     Route: 042
  4. METHOHEXITAL (METHOHEXITAL) (METHOHEXITAL) [Concomitant]
  5. RITUXIMAB (RITUXIMAB) (RITUXIMAB) [Suspect]
     Indication: CHRONIC LYMPHOCYTIC LEUKAEMIA

REACTIONS (5)
  - NEUROMUSCULAR BLOCK PROLONGED [None]
  - MAJOR DEPRESSION [None]
  - NERVE STIMULATION TEST ABNORMAL [None]
  - APNOEA [None]
  - DRUG INTERACTION [None]
